FAERS Safety Report 7781582-9 (Version None)
Quarter: 2011Q3

REPORT INFORMATION
  Report Type: 
  Country: None (occurrence: None)
  Receive Date: 20110927
  Receipt Date: 20110916
  Transmission Date: 20111222
  Serious: Yes (Other)
  Sender: FDA-Public Use
  Company Number: US-BAYER-2011-087133

PATIENT
  Age: 34 Year
  Sex: Female

DRUGS (1)
  1. MIRENA [Suspect]
     Indication: CONTRACEPTION
     Dosage: 20 MCG/24HR, CONT
     Route: 015
     Dates: start: 20110907, end: 20110914

REACTIONS (5)
  - DEVICE DIFFICULT TO USE [None]
  - DEPRESSION SUICIDAL [None]
  - POST PROCEDURAL HAEMORRHAGE [None]
  - VAGINITIS BACTERIAL [None]
  - SUICIDAL IDEATION [None]
